FAERS Safety Report 6908422-1 (Version None)
Quarter: 2010Q3

REPORT INFORMATION
  Report Type: 
  Country: None (occurrence: None)
  Receive Date: 20100805
  Receipt Date: 20100728
  Transmission Date: 20110219
  Serious: Yes (Hospitalization)
  Sender: FDA-Public Use
  Company Number: JP-EISAI INC.-E3810-03968-CLI-JP

PATIENT
  Sex: Female
  Weight: 50 kg

DRUGS (4)
  1. RABEPRAZOLE SODIUM [Suspect]
     Route: 048
     Dates: start: 20100608, end: 20100722
  2. OLMESARTAN MEDOXOMIL [Concomitant]
     Indication: HYPERTENSION
     Route: 048
     Dates: start: 20100626
  3. CRESTOR [Concomitant]
     Indication: DYSLIPIDAEMIA
     Route: 048
     Dates: start: 20100528
  4. MYSLEE [Concomitant]
     Indication: INSOMNIA
     Route: 048
     Dates: start: 20100528

REACTIONS (1)
  - CONDITION AGGRAVATED [None]
